FAERS Safety Report 7508252-6 (Version None)
Quarter: 2011Q2

REPORT INFORMATION
  Report Type: 
  Country: None (occurrence: None)
  Receive Date: 20110519
  Receipt Date: 20110512
  Transmission Date: 20111010
  Serious: Yes (Hospitalization)
  Sender: FDA-Public Use
  Company Number: 2010SP056198

PATIENT
  Age: 41 Year
  Sex: Female
  Weight: 65.318 kg

DRUGS (2)
  1. MULTI-VITAMIN [Concomitant]
  2. NUVARING [Suspect]
     Indication: CONTRACEPTION
     Dates: start: 20050413, end: 20050529

REACTIONS (16)
  - PAIN [None]
  - PALPITATIONS [None]
  - CHEST DISCOMFORT [None]
  - DEEP VEIN THROMBOSIS [None]
  - POOR PERIPHERAL CIRCULATION [None]
  - MENSTRUATION IRREGULAR [None]
  - HYPERCOAGULATION [None]
  - JOINT SPRAIN [None]
  - PRODUCT QUALITY ISSUE [None]
  - MOBILITY DECREASED [None]
  - DIVERTICULITIS [None]
  - MULTIPLE INJURIES [None]
  - ABDOMINAL PAIN [None]
  - CHEST PAIN [None]
  - ELECTROCARDIOGRAM T WAVE ABNORMAL [None]
  - OVARIAN CYST [None]
